FAERS Safety Report 11986372 (Version 2)
Quarter: 2016Q3

REPORT INFORMATION
  Report Type: Report from Study
  Country: US (occurrence: US)
  Receive Date: 20160202
  Receipt Date: 20160902
  Transmission Date: 20161109
  Serious: No
  Sender: FDA-Public Use
  Company Number: US-AMGEN-USASL2016010515

PATIENT
  Age: 55 Year
  Sex: Female

DRUGS (1)
  1. ENBREL [Suspect]
     Active Substance: ETANERCEPT
     Indication: RHEUMATOID ARTHRITIS
     Dosage: 50 MG, QWK
     Route: 065
     Dates: start: 20151201

REACTIONS (10)
  - Injection site erythema [Recovered/Resolved]
  - Pollakiuria [Unknown]
  - Injection site bruising [Recovered/Resolved]
  - Injection site pruritus [Unknown]
  - Arthralgia [Recovering/Resolving]
  - Swelling [Recovering/Resolving]
  - Injection site pain [Unknown]
  - Pain [Recovering/Resolving]
  - Drug effect incomplete [Unknown]
  - Pain in extremity [Recovering/Resolving]

NARRATIVE: CASE EVENT DATE: 2016
